FAERS Safety Report 17826950 (Version 1)
Quarter: 2020Q2

REPORT INFORMATION
  Report Type: Spontaneous
  Country: US (occurrence: US)
  Receive Date: 20200527
  Receipt Date: 20200527
  Transmission Date: 20200714
  Serious: No
  Sender: FDA-Public Use
  Company Number: US-CIPLA LTD.-2020US01796

PATIENT

DRUGS (1)
  1. DICLOFENAC [Suspect]
     Active Substance: DICLOFENAC
     Indication: BURSITIS
     Dosage: UNK, TRIED LITTLE BIT OF GEL
     Route: 061
     Dates: start: 20200310, end: 20200310

REACTIONS (7)
  - Off label use [Unknown]
  - Product use in unapproved indication [Unknown]
  - Suspected product tampering [Unknown]
  - Burning sensation [Unknown]
  - Taste disorder [Unknown]
  - Dysgeusia [Unknown]
  - Product container seal issue [Unknown]

NARRATIVE: CASE EVENT DATE: 20200310
